FAERS Safety Report 20155587 (Version 1)
Quarter: 2021Q4

REPORT INFORMATION
  Report Type: Spontaneous
  Country: US (occurrence: None)
  Receive Date: 20211206
  Receipt Date: 20211206
  Transmission Date: 20220303
  Serious: No
  Sender: FDA-Public Use
  Company Number: None

PATIENT
  Age: 47 Year
  Sex: Male
  Weight: 101.25 kg

DRUGS (1)
  1. MELOXICAM [Suspect]
     Active Substance: MELOXICAM
     Indication: Biliary colic
     Dosage: OTHER QUANTITY : 1 TABLET(S);?
     Route: 048
     Dates: start: 20211129, end: 20211130

REACTIONS (10)
  - Cough [None]
  - Respiratory distress [None]
  - Loss of consciousness [None]
  - Fall [None]
  - Incoherent [None]
  - Pulse abnormal [None]
  - Heart rate increased [None]
  - Internal haemorrhage [None]
  - Faeces discoloured [None]
  - Oxygen saturation decreased [None]

NARRATIVE: CASE EVENT DATE: 20211201
